FAERS Safety Report 23141917 (Version 1)
Quarter: 2023Q4

REPORT INFORMATION
  Report Type: Spontaneous
  Country: US (occurrence: US)
  Receive Date: 20231103
  Receipt Date: 20231103
  Transmission Date: 20240110
  Serious: Yes (Death, Hospitalization)
  Sender: FDA-Public Use
  Company Number: US-STRIDES ARCOLAB LIMITED-2023SP016280

PATIENT
  Age: 66 Year
  Sex: Female

DRUGS (13)
  1. TRAMADOL [Suspect]
     Active Substance: TRAMADOL\TRAMADOL HYDROCHLORIDE
     Indication: Cancer pain
     Dosage: UNK
     Route: 065
  2. TRAMADOL [Suspect]
     Active Substance: TRAMADOL\TRAMADOL HYDROCHLORIDE
     Indication: Pain
  3. MORPHINE [Suspect]
     Active Substance: MORPHINE
     Indication: Cancer pain
     Dosage: UNK
     Route: 048
  4. MORPHINE [Suspect]
     Active Substance: MORPHINE
     Indication: Pain
  5. FENTANYL [Suspect]
     Active Substance: FENTANYL\FENTANYL CITRATE
     Indication: Cancer pain
     Dosage: UNK
     Route: 062
  6. FENTANYL [Suspect]
     Active Substance: FENTANYL\FENTANYL CITRATE
     Indication: Pain
     Dosage: UNK, LOW DOSE, PRN
     Route: 042
  7. HYDROMORPHONE [Suspect]
     Active Substance: HYDROMORPHONE
     Indication: Cancer pain
     Dosage: 75 MILLIGRAM, PRN
     Route: 042
  8. HYDROMORPHONE [Suspect]
     Active Substance: HYDROMORPHONE
     Indication: Pain
     Dosage: UNK, LOW DOSE, PRN
     Route: 065
  9. HYDROMORPHONE [Suspect]
     Active Substance: HYDROMORPHONE
     Indication: Analgesic therapy
  10. LIDOCAINE [Suspect]
     Active Substance: LIDOCAINE
     Indication: Cancer pain
     Dosage: LOW DOSE, 1-2 MG PER KG PER HOUR
     Route: 042
  11. LIDOCAINE [Suspect]
     Active Substance: LIDOCAINE
     Indication: Pain
  12. BUPIVACAINE [Suspect]
     Active Substance: BUPIVACAINE
     Indication: Cancer pain
     Dosage: UNK, LOW DOSE
     Route: 065
  13. BUPIVACAINE [Suspect]
     Active Substance: BUPIVACAINE
     Indication: Pain

REACTIONS (2)
  - Death [Fatal]
  - Treatment failure [Unknown]
